FAERS Safety Report 9665443 (Version 1)
Quarter: 2013Q4

REPORT INFORMATION
  Report Type: Spontaneous
  Country: US (occurrence: None)
  Receive Date: 20131031
  Receipt Date: 20131031
  Transmission Date: 20140711
  Serious: Yes (Hospitalization)
  Sender: FDA-Public Use
  Company Number: None

PATIENT
  Age: 51 Year
  Sex: Female
  Weight: 61.7 kg

DRUGS (13)
  1. VORICONAZOLE [Suspect]
     Indication: FEBRILE NEUTROPENIA
     Route: 048
     Dates: start: 20110818, end: 20110821
  2. ATGAM [Concomitant]
  3. ACETAMINOPHEN [Concomitant]
  4. ALPRAZOLAM [Concomitant]
  5. DIPHENHYDRAMINE [Concomitant]
  6. HYDROCORTISONE [Concomitant]
  7. LACTULOSE [Concomitant]
  8. MEPERIDINE [Concomitant]
  9. OXYCODONE [Concomitant]
  10. MIRALAX [Concomitant]
  11. PREDNISONE [Concomitant]
  12. SENNA [Concomitant]
  13. TEMAZEPAM [Concomitant]

REACTIONS (4)
  - Sinus bradycardia [None]
  - Electrocardiogram QT prolonged [None]
  - Liver function test abnormal [None]
  - Infusion related reaction [None]
